FAERS Safety Report 21964781 (Version 1)
Quarter: 2023Q1

REPORT INFORMATION
  Report Type: Spontaneous
  Country: CN (occurrence: CN)
  Receive Date: 20230207
  Receipt Date: 20230207
  Transmission Date: 20230417
  Serious: Yes (Hospitalization, Other)
  Sender: FDA-Public Use
  Company Number: CN-009507513-2302CHN001443

PATIENT
  Age: 66 Year
  Sex: Male
  Weight: 66 kg

DRUGS (2)
  1. KEYTRUDA [Suspect]
     Active Substance: PEMBROLIZUMAB
     Indication: Colon cancer
     Dosage: 200 MG, ONE TIME IN ONE DAY
     Route: 041
     Dates: start: 20221129, end: 20221129
  2. KEYTRUDA [Suspect]
     Active Substance: PEMBROLIZUMAB
     Dosage: 200 MG, ONE TIME IN ONE DAY
     Route: 041
     Dates: start: 20221221, end: 20221221

REACTIONS (3)
  - Immune-mediated myocarditis [Unknown]
  - Muscular weakness [Unknown]
  - Product use issue [Unknown]

NARRATIVE: CASE EVENT DATE: 20221221
